FAERS Safety Report 4823450-8 (Version None)
Quarter: 2005Q4

REPORT INFORMATION
  Report Type: 
  Country: None (occurrence: None)
  Receive Date: 20051107
  Receipt Date: 20051102
  Transmission Date: 20060501
  Serious: Yes (Other)
  Sender: FDA-Public Use
  Company Number: 2005-09-0687

PATIENT
  Age: 58 Year
  Sex: Female
  Weight: 68 kg

DRUGS (3)
  1. AERIUS (DESORATADINE)TABLETS   ^LIKE CLARINEX^ [Suspect]
     Indication: URTICARIA CHRONIC
     Dosage: 5 MG QD ORAL
     Route: 048
     Dates: start: 20050601
  2. BECOTIDE [Concomitant]
  3. VENTOLIN [Concomitant]

REACTIONS (3)
  - FATIGUE [None]
  - HEADACHE [None]
  - TINNITUS [None]
